FAERS Safety Report 4350095-9 (Version None)
Quarter: 2004Q2

REPORT INFORMATION
  Report Type: 
  Country: None (occurrence: None)
  Receive Date: 20040429
  Receipt Date: 20040204
  Transmission Date: 20050107
  Serious: Yes (Hospitalization, Congenital Anomaly)
  Sender: FDA-Public Use
  Company Number: FR-GLAXOSMITHKLINE-B0323664A

PATIENT
  Sex: Male

DRUGS (4)
  1. RETROVIR [Suspect]
     Indication: ANTIVIRAL PROPHYLAXIS
     Dosage: 8MG FOUR TIMES PER DAY
     Route: 048
     Dates: start: 20031014, end: 20031114
  2. RETROVIR [Suspect]
  3. COMBIVIR [Suspect]
     Indication: HIV INFECTION
  4. NELFINAVIR [Concomitant]
     Indication: HIV INFECTION

REACTIONS (5)
  - ANAEMIA [None]
  - ANAEMIA NEONATAL [None]
  - CAESAREAN SECTION [None]
  - DRUG EXPOSURE DURING PREGNANCY [None]
  - GLUCOSE-6-PHOSPHATE DEHYDROGENASE DEFICIENCY [None]
